FAERS Safety Report 7590082-0 (Version None)
Quarter: 2011Q3

REPORT INFORMATION
  Report Type: 
  Country: None (occurrence: None)
  Receive Date: 20110705
  Receipt Date: 20110511
  Transmission Date: 20111222
  Serious: Yes (Other)
  Sender: FDA-Public Use
  Company Number: B0718870A

PATIENT
  Sex: Male

DRUGS (9)
  1. FAMOTIDINE [Concomitant]
     Route: 048
  2. PROMACTA [Suspect]
     Indication: IDIOPATHIC THROMBOCYTOPENIC PURPURA
     Dosage: 12.5MG PER DAY
     Route: 048
     Dates: start: 20110427
  3. NOVOLIN R [Concomitant]
  4. ROHYPNOL [Concomitant]
  5. MEDROL [Concomitant]
  6. SULFAMETHOXAZOLE [Concomitant]
     Route: 048
  7. LANTUS [Concomitant]
     Route: 058
  8. ADONA [Concomitant]
  9. OLMESARTAN MEDOXOMIL [Concomitant]
     Route: 048

REACTIONS (3)
  - ASPARTATE AMINOTRANSFERASE INCREASED [None]
  - HEPATIC FUNCTION ABNORMAL [None]
  - ALANINE AMINOTRANSFERASE INCREASED [None]
